FAERS Safety Report 11254375 (Version 4)
Quarter: 2016Q3

REPORT INFORMATION
  Report Type: Spontaneous
  Country: ES (occurrence: ES)
  Receive Date: 20150709
  Receipt Date: 20160727
  Transmission Date: 20161109
  Serious: Yes (Other)
  Sender: FDA-Public Use
  Company Number: ES-SA-2015SA096093

PATIENT
  Age: 42 Year
  Sex: Female

DRUGS (1)
  1. LEMTRADA [Suspect]
     Active Substance: ALEMTUZUMAB
     Indication: RELAPSING-REMITTING MULTIPLE SCLEROSIS
     Route: 065
     Dates: start: 20150209

REACTIONS (5)
  - Aplasia pure red cell [Not Recovered/Not Resolved]
  - Leukocyturia [Not Recovered/Not Resolved]
  - Haemoglobin decreased [Recovered/Resolved]
  - Haematocrit decreased [Recovered/Resolved]
  - Lymphopenia [Not Recovered/Not Resolved]

NARRATIVE: CASE EVENT DATE: 2015
